FAERS Safety Report 9630584 (Version 1)
Quarter: 2013Q4

REPORT INFORMATION
  Report Type: Spontaneous
  Country: US (occurrence: None)
  Receive Date: 20131016
  Receipt Date: 20131016
  Transmission Date: 20140711
  Serious: No
  Sender: FDA-Public Use
  Company Number: None

PATIENT
  Age: 27 Year
  Sex: Male
  Weight: 72.58 kg

DRUGS (1)
  1. PROPECIA [Suspect]
     Indication: ALOPECIA
     Dosage: 1 PILL ONCE DAILY TAKEN BY MOUTH
     Dates: start: 20101007, end: 20130122

REACTIONS (7)
  - Erectile dysfunction [None]
  - Depression [None]
  - Anxiety [None]
  - Testicular atrophy [None]
  - Testicular pain [None]
  - Azoospermia [None]
  - Loss of libido [None]
